FAERS Safety Report 6972713-9 (Version None)
Quarter: 2010Q3

REPORT INFORMATION
  Report Type: 
  Country: None (occurrence: None)
  Receive Date: 20100909
  Receipt Date: 20100409
  Transmission Date: 20110219
  Serious: No
  Sender: FDA-Public Use
  Company Number: US-KINGPHARMUSA00001-K201000426

PATIENT
  Age: 52 Year
  Sex: Female
  Weight: 61.224 kg

DRUGS (2)
  1. CYTOMEL [Suspect]
     Indication: AUTOIMMUNE THYROIDITIS
     Dosage: 5 MCG, QD
     Route: 048
     Dates: start: 20091001, end: 20100401
  2. LEVOXYL [Concomitant]
     Indication: AUTOIMMUNE THYROIDITIS
     Dosage: 25 MCG, QD
     Route: 048
     Dates: start: 20090701

REACTIONS (6)
  - FEELING ABNORMAL [None]
  - HYPERTHYROIDISM [None]
  - HYPOTHYROIDISM [None]
  - MYALGIA [None]
  - PSYCHOMOTOR HYPERACTIVITY [None]
  - VISION BLURRED [None]
